FAERS Safety Report 7004142-6 (Version None)
Quarter: 2010Q3

REPORT INFORMATION
  Report Type: 
  Country: None (occurrence: None)
  Receive Date: 20100920
  Receipt Date: 20100223
  Transmission Date: 20110219
  Serious: No
  Sender: FDA-Public Use
  Company Number: US-WYE-H13802610

PATIENT
  Age: 54 Year
  Sex: Female
  Weight: 56.75 kg

DRUGS (2)
  1. PRISTIQ [Suspect]
     Indication: DEPRESSION
     Route: 048
     Dates: start: 20100220, end: 20100221
  2. SYNTHROID [Concomitant]

REACTIONS (2)
  - MIGRAINE [None]
  - NAUSEA [None]
